FAERS Safety Report 22622096 (Version 1)
Quarter: 2023Q2

REPORT INFORMATION
  Report Type: Spontaneous
  Country: CN (occurrence: CN)
  Receive Date: 20230620
  Receipt Date: 20230620
  Transmission Date: 20230722
  Serious: Yes (Other)
  Sender: FDA-Public Use
  Company Number: CN-PFIZER INC-PV202300106742

PATIENT
  Age: 55 Year
  Sex: Male
  Weight: 65 kg

DRUGS (1)
  1. ZYVOX [Suspect]
     Active Substance: LINEZOLID
     Indication: Bacterial infection
     Dosage: 0.6 G, 2X/DAY
     Route: 048
     Dates: start: 20230513, end: 20230515

REACTIONS (1)
  - Blood urea increased [Recovering/Resolving]

NARRATIVE: CASE EVENT DATE: 20230516
